FAERS Safety Report 9624299 (Version 2)
Quarter: 2017Q1

REPORT INFORMATION
  Report Type: Report from Study
  Country: KR (occurrence: KR)
  Receive Date: 20131015
  Receipt Date: 20170113
  Transmission Date: 20170429
  Serious: Yes (Other)
  Sender: FDA-Public Use
  Company Number: KR-ROCHE-1289128

PATIENT
  Age: 62 Year
  Sex: Male

DRUGS (2)
  1. EVEROLIMUS [Suspect]
     Active Substance: EVEROLIMUS
     Indication: GASTRIC CANCER
     Dosage: DAYS 1-21 WITHOUT REST. SHE RECEIVED A TOTAL OF 5 CYCLES,
     Route: 065
     Dates: start: 20110718, end: 20111102
  2. CAPECITABINE. [Suspect]
     Active Substance: CAPECITABINE
     Indication: GASTRIC CANCER
     Dosage: DAYS 1-14 FOLLOWED BY A 7-DAY REST PERIOD.
     Route: 065

REACTIONS (1)
  - Mucosal inflammation [Unknown]
